FAERS Safety Report 6634042-2 (Version None)
Quarter: 2010Q1

REPORT INFORMATION
  Report Type: 
  Country: None (occurrence: None)
  Receive Date: 20100315
  Receipt Date: 20100310
  Transmission Date: 20100710
  Serious: Yes (Death, Hospitalization, Other)
  Sender: FDA-Public Use
  Company Number: PHEH2010US02539

PATIENT
  Sex: Female
  Weight: 56.689 kg

DRUGS (6)
  1. ZOMETA [Suspect]
     Indication: MULTIPLE MYELOMA
     Dosage: 4 MG, QMO
     Route: 042
     Dates: start: 20090820, end: 20091209
  2. THALOMID [Concomitant]
     Indication: MULTIPLE MYELOMA
     Dosage: 100 MG, QD
  3. DEXAMETHASONE [Concomitant]
     Indication: MULTIPLE MYELOMA
     Dosage: 20 MG, UNK
  4. LYRICA [Suspect]
     Indication: NEUROPATHY PERIPHERAL
     Dosage: 75 MG, BID
  5. TYLENOL-500 [Concomitant]
     Indication: PYREXIA
     Dosage: 1000 MG, BID
     Dates: start: 20091214
  6. ACECLOFENAC [Concomitant]
     Indication: PYREXIA
     Dosage: UNK
     Dates: end: 20091214

REACTIONS (12)
  - BLOOD ALBUMIN DECREASED [None]
  - BLOOD GLUCOSE INCREASED [None]
  - BLOOD POTASSIUM INCREASED [None]
  - BLOOD SODIUM DECREASED [None]
  - HAEMATOCRIT DECREASED [None]
  - HAEMOGLOBIN DECREASED [None]
  - MULTIPLE MYELOMA [None]
  - PLATELET COUNT DECREASED [None]
  - PLEURAL DISORDER [None]
  - RED BLOOD CELL COUNT DECREASED [None]
  - RETROPERITONEAL NEOPLASM [None]
  - WHITE BLOOD CELL COUNT INCREASED [None]
